FAERS Safety Report 5514471-0 (Version None)
Quarter: 2007Q4

REPORT INFORMATION
  Report Type: 
  Country: None (occurrence: None)
  Receive Date: 20071113
  Receipt Date: 20070604
  Transmission Date: 20080405
  Serious: No
  Sender: FDA-Public Use
  Company Number: A0654083A

PATIENT
  Age: 56 Year
  Sex: Female

DRUGS (4)
  1. COREG [Suspect]
     Dosage: 3.125MG TWICE PER DAY
     Route: 048
  2. CYTOMEL [Concomitant]
  3. SEREVENT [Concomitant]
  4. OXYGEN THERAPY [Concomitant]

REACTIONS (1)
  - VISION BLURRED [None]
